FAERS Safety Report 4622577-3 (Version None)
Quarter: 2005Q1

REPORT INFORMATION
  Report Type: 
  Country: None (occurrence: None)
  Receive Date: 20050325
  Receipt Date: 20050325
  Transmission Date: 20050727
  Serious: Yes (Other)
  Sender: FDA-Public Use
  Company Number: None

PATIENT
  Age: 54 Year
  Sex: Male
  Weight: 83 kg

DRUGS (4)
  1. DECITABINE     SUPERGEN [Suspect]
     Indication: METASTATIC MALIGNANT MELANOMA
     Dosage: 17 MG QD X 10 DA    SUBCUTANEOUS
     Route: 058
     Dates: start: 20050221, end: 20050304
  2. ALDESLEUKIN      CHIRON CORPORATION [Suspect]
     Indication: METASTATIC MALIGNANT MELANOMA
     Dosage: 47 MIU Q8H X 5 DA    INTRAVENOUS
     Route: 042
     Dates: start: 20050307, end: 20050311
  3. NORVASC [Concomitant]
  4. PEGFILGRASTIM [Concomitant]

REACTIONS (1)
  - NEUTROPENIA [None]
